FAERS Safety Report 9559622 (Version 1)
Quarter: 2013Q3

REPORT INFORMATION
  Report Type: Spontaneous
  Country: US (occurrence: None)
  Receive Date: 20130906
  Receipt Date: 20130906
  Transmission Date: 20140515
  Serious: Yes (Other)
  Sender: FDA-Public Use
  Company Number: 163-POMAL-13071682

PATIENT
  Age: 54 Year
  Sex: Female
  Weight: 61.69 kg

DRUGS (13)
  1. POMALYST [Suspect]
     Dosage: 3MG, 1 IN 1D, PO
     Dates: start: 20130601, end: 20130703
  2. PROTONIX (TABLETS) [Concomitant]
  3. ZOLPIDEM TARTRATE (ZOLPIDEM TARTRATE) [Concomitant]
  4. AMLODIPINE BESYLATE (AMLODIPINE BESILATE) [Concomitant]
  5. DEXAMETHASONE (DEXAMETHASONE) [Concomitant]
  6. TRAMADOL HCL [Concomitant]
  7. ONDANSETRON HCL (ONDANSETRON HYDROCHLORIDE) [Concomitant]
  8. GABAPENTIN (GABAPENTIN) [Concomitant]
  9. GENTANYL (FENTANYL) [Concomitant]
  10. VALTREX (VALACICLOVID HYDROCHLORIDE) (TABLETS) [Concomitant]
  11. OXYCODONE HCL (OXYCODONE HYDROCHLORIDE) [Concomitant]
  12. NEUPOGEN (FILGRASTIM) (INJECTION) [Concomitant]
  13. LEVAQUIN (LEVOFLOXACIN) [Concomitant]

REACTIONS (4)
  - Pneumonia [None]
  - Full blood count decreased [None]
  - Platelet count decreased [None]
  - Renal failure [None]
